FAERS Safety Report 6221592-6 (Version None)
Quarter: 2009Q2

REPORT INFORMATION
  Report Type: 
  Country: None (occurrence: None)
  Receive Date: 20090608
  Receipt Date: 20090522
  Transmission Date: 20091009
  Serious: Yes (Hospitalization)
  Sender: FDA-Public Use
  Company Number: 285545

PATIENT
  Age: 14 Year
  Sex: Male
  Weight: 93 kg

DRUGS (6)
  1. VINCRISTINE [Suspect]
     Indication: ACUTE LYMPHOCYTIC LEUKAEMIA
     Dosage: 4 MG, INTRAVENOUS
     Route: 042
     Dates: start: 20080509, end: 20080514
  2. METHOTREXATE [Suspect]
     Indication: ACUTE LYMPHOCYTIC LEUKAEMIA
     Dosage: 8600 MG, INTRAVENOUS
     Route: 042
     Dates: start: 20080509
  3. (ENDOXAN /00021101/) [Suspect]
     Indication: ACUTE LYMPHOCYTIC LEUKAEMIA
     Dosage: INTRAVENOUS
     Route: 042
     Dates: start: 20080510, end: 20080512
  4. GLEEVEC [Suspect]
     Indication: ACUTE LYMPHOCYTIC LEUKAEMIA
     Dosage: 600 MG,
     Dates: start: 20080515, end: 20080518
  5. (ARACYTINE) [Suspect]
     Indication: ACUTE LYMPHOCYTIC LEUKAEMIA
     Dosage: 43000, INTRAVENOUS
     Route: 042
     Dates: start: 20080513, end: 20080514
  6. BACTRIM [Suspect]
     Indication: ACUTE LYMPHOCYTIC LEUKAEMIA
     Dates: start: 20080515, end: 20080518

REACTIONS (11)
  - CHOLESTASIS [None]
  - CYTOLYTIC HEPATITIS [None]
  - FEBRILE BONE MARROW APLASIA [None]
  - HAEMODIALYSIS [None]
  - HYPERTENSION [None]
  - MONOPLEGIA [None]
  - OEDEMA [None]
  - RENAL FAILURE [None]
  - RESPIRATORY DISORDER [None]
  - STEVENS-JOHNSON SYNDROME [None]
  - THROMBOCYTOPENIA [None]
